FAERS Safety Report 4808726-2 (Version None)
Quarter: 2005Q4

REPORT INFORMATION
  Report Type: 
  Country: None (occurrence: None)
  Receive Date: 20051021
  Receipt Date: 20031218
  Transmission Date: 20060501
  Serious: No
  Sender: FDA-Public Use
  Company Number: EWC031237474

PATIENT
  Age: 76 Year
  Sex: Male

DRUGS (3)
  1. ZYPREXA [Suspect]
     Dosage: 5 MG/DAY
     Dates: start: 20031114, end: 20031204
  2. ZESTRIL [Concomitant]
  3. OMNIC (TAMSULOSIN HYDROCHLORIDE) [Concomitant]

REACTIONS (1)
  - THROMBOCYTOPENIA [None]
